FAERS Safety Report 4810564-1 (Version None)
Quarter: 2005Q4

REPORT INFORMATION
  Report Type: 
  Country: None (occurrence: None)
  Receive Date: 20051025
  Receipt Date: 20051025
  Transmission Date: 20060501
  Serious: Yes (Hospitalization)
  Sender: FDA-Public Use
  Company Number: None

PATIENT
  Age: 53 Year
  Sex: Male
  Weight: 85.7 kg

DRUGS (6)
  1. ATORVASTATIN CALCIUM [Suspect]
     Indication: HYPERCHOLESTEROLAEMIA
     Dosage: 20 MG QHS
     Dates: start: 20050912, end: 20050920
  2. GEMFIBROZIL [Suspect]
     Indication: HYPERCHOLESTEROLAEMIA
     Dosage: 600 MG BID
     Dates: start: 20050912, end: 20050920
  3. HYDROCODONE 10MG/ACETAMINOPHEN 500MG [Concomitant]
  4. ASA325/BUTALBITAL50/CAFF40MG [Concomitant]
  5. SILDENAFIL CITRATE [Concomitant]
  6. OMEGA-3 FISH OIL [Concomitant]

REACTIONS (1)
  - LOSS OF CONSCIOUSNESS [None]
